FAERS Safety Report 8665731 (Version 2)
Quarter: 2013Q4

REPORT INFORMATION
  Report Type: Spontaneous
  Country: US (occurrence: US)
  Receive Date: 20120716
  Receipt Date: 20131101
  Transmission Date: 20140711
  Serious: No
  Sender: FDA-Public Use
  Company Number: US-009507513-1207USA002561

PATIENT
  Sex: Female

DRUGS (7)
  1. PEGINTRON [Suspect]
     Indication: HEPATITIS C
     Dosage: UNK
     Dates: start: 20120709
  2. REBETOL [Suspect]
  3. TELAPREVIR [Concomitant]
  4. RANITIDINE [Concomitant]
  5. ZANTAC [Concomitant]
  6. ATENOLOL [Concomitant]
  7. HYDROCHLOROTHIAZIDE (+) LOSARTAN POTASSIUM [Concomitant]

REACTIONS (2)
  - Injection site haemorrhage [Recovering/Resolving]
  - Product quality issue [Unknown]
